FAERS Safety Report 14803642 (Version 1)
Quarter: 2018Q2

REPORT INFORMATION
  Report Type: Spontaneous
  Country: US (occurrence: US)
  Receive Date: 20180425
  Receipt Date: 20180425
  Transmission Date: 20180711
  Serious: Yes (Hospitalization, Other)
  Sender: FDA-Public Use
  Company Number: US-BRISTOL-MYERS SQUIBB COMPANY-BMS-2018-035268

PATIENT
  Age: 98 Year
  Sex: Female

DRUGS (1)
  1. COUMADINE [Suspect]
     Active Substance: WARFARIN SODIUM
     Indication: ATRIAL FIBRILLATION
     Dosage: UNAVAILABLE
     Route: 065

REACTIONS (4)
  - Faeces discoloured [Unknown]
  - Haemorrhage [Unknown]
  - Overdose [Unknown]
  - Dizziness [Unknown]
